FAERS Safety Report 12329254 (Version 1)
Quarter: 2016Q2

REPORT INFORMATION
  Report Type: Spontaneous
  Country: JO (occurrence: JO)
  Receive Date: 20160503
  Receipt Date: 20160503
  Transmission Date: 20160815
  Serious: Yes (Other)
  Sender: FDA-Public Use
  Company Number: JO-HQ SPECIALTY-JO-2016INT000246

PATIENT
  Age: 12 Year
  Sex: Female

DRUGS (6)
  1. BLEOMYCIN [Suspect]
     Active Substance: BLEOMYCIN SULFATE
     Indication: OVARIAN GERM CELL TUMOUR MIXED
     Dosage: UNK
  2. CYCLOPHOSPHAMIDE. [Concomitant]
     Active Substance: CYCLOPHOSPHAMIDE
     Indication: OVARIAN GERM CELL TUMOUR MIXED
     Dosage: UNK
  3. CISPLATIN. [Suspect]
     Active Substance: CISPLATIN
     Indication: OVARIAN GERM CELL TUMOUR MIXED
     Dosage: UNK
  4. ETOPOSIDE. [Suspect]
     Active Substance: ETOPOSIDE
     Indication: OVARIAN GERM CELL TUMOUR MIXED
     Dosage: UNK
  5. VINCRISTINE [Suspect]
     Active Substance: VINCRISTINE
     Indication: OVARIAN GERM CELL TUMOUR MIXED
     Dosage: UNK
  6. ACTINOMYCIN D [Suspect]
     Active Substance: DACTINOMYCIN
     Indication: OVARIAN GERM CELL TUMOUR MIXED
     Dosage: UNK

REACTIONS (2)
  - Ovarian germ cell teratoma [Recovered/Resolved]
  - Mass [Recovered/Resolved]
